FAERS Safety Report 18628965 (Version 3)
Quarter: 2021Q4

REPORT INFORMATION
  Report Type: Spontaneous
  Country: US (occurrence: US)
  Receive Date: 20201217
  Receipt Date: 20211216
  Transmission Date: 20220303
  Serious: Yes (Other)
  Sender: FDA-Public Use
  Company Number: US-PFIZER INC-2020382355

PATIENT
  Age: 68 Year
  Sex: Female

DRUGS (2)
  1. PHENYTOIN SODIUM [Suspect]
     Active Substance: PHENYTOIN SODIUM
     Indication: Seizure
     Dosage: UNK
  2. PHENYTOIN SODIUM [Suspect]
     Active Substance: PHENYTOIN SODIUM
     Dosage: 300 MG, 2X/DAY (TAKE 100 MG IN THE MORNING AND 200 MG IN THE EVENING)

REACTIONS (2)
  - Seizure [Unknown]
  - Condition aggravated [Unknown]
